FAERS Safety Report 6861539-2 (Version None)
Quarter: 2010Q3

REPORT INFORMATION
  Report Type: 
  Country: None (occurrence: None)
  Receive Date: 20100721
  Receipt Date: 20100713
  Transmission Date: 20110219
  Serious: Yes (Death, Hospitalization)
  Sender: FDA-Public Use
  Company Number: JP-BAYER-201011853BYL

PATIENT
  Age: 77 Year
  Sex: Male
  Weight: 59 kg

DRUGS (16)
  1. NEXAVAR [Suspect]
     Indication: HEPATIC NEOPLASM MALIGNANT
     Dosage: TOTAL DAILY DOSE: 800 MG  UNIT DOSE: 200 MG
     Route: 048
     Dates: start: 20100331, end: 20100413
  2. NEXAVAR [Suspect]
     Dosage: UNIT DOSE: 200 MG
     Route: 048
     Dates: start: 20100426, end: 20100516
  3. OLMETEC [Suspect]
     Indication: PRODUCT USED FOR UNKNOWN INDICATION
     Route: 048
     Dates: start: 20100330, end: 20100413
  4. AMLODIN OD [Concomitant]
     Route: 048
     Dates: end: 20100405
  5. AMLODIN OD [Concomitant]
     Route: 048
     Dates: start: 20100407, end: 20100521
  6. OMEPRAL [Concomitant]
     Route: 065
     Dates: end: 20100521
  7. VESICARE [Concomitant]
     Route: 048
     Dates: end: 20100521
  8. CARNACULIN [Concomitant]
     Route: 048
     Dates: end: 20100521
  9. ADONA [Concomitant]
     Route: 065
     Dates: end: 20100521
  10. HYALEIN [Concomitant]
     Route: 031
     Dates: end: 20100521
  11. DICLOD [Concomitant]
     Route: 031
     Dates: end: 20100521
  12. RINDERON-VG [Concomitant]
     Route: 061
     Dates: end: 20100521
  13. KETOPROFEN [Concomitant]
     Route: 062
     Dates: end: 20100521
  14. VOLTAREN [Concomitant]
     Route: 062
     Dates: end: 20100521
  15. GABAPEN [Concomitant]
     Route: 048
     Dates: start: 20100421
  16. MEDICON [Concomitant]
     Route: 048
     Dates: start: 20100407, end: 20100521

REACTIONS (4)
  - BLOOD GLUCOSE DECREASED [None]
  - HYPERKALAEMIA [None]
  - HYPOGLYCAEMIA [None]
  - RESPIRATORY FAILURE [None]
